FAERS Safety Report 21880519 (Version 1)
Quarter: 2023Q1

REPORT INFORMATION
  Report Type: Spontaneous
  Country: GB (occurrence: GB)
  Receive Date: 20230118
  Receipt Date: 20230118
  Transmission Date: 20230418
  Serious: Yes (Other)
  Sender: FDA-Public Use
  Company Number: None

PATIENT
  Age: 85 Year
  Sex: Female

DRUGS (16)
  1. AMITRIPTYLINE [Suspect]
     Active Substance: AMITRIPTYLINE
     Indication: Product used for unknown indication
     Dosage: 1-2 PER NIGHT
     Dates: start: 20220419
  2. BISACODYL [Concomitant]
     Active Substance: BISACODYL
     Dosage: AT NIGHT
     Dates: start: 20220419
  3. CHOLECALCIFEROL [Concomitant]
     Active Substance: CHOLECALCIFEROL
     Dosage: EVERY MORNING
     Dates: start: 20220419
  4. DOCUSATE [Concomitant]
     Active Substance: DOCUSATE
     Dates: start: 20220419
  5. MINERAL OIL\PETROLATUM\WAX, EMULSIFYING [Concomitant]
     Active Substance: MINERAL OIL\PETROLATUM\WAX, EMULSIFYING
     Dosage: USE AS DIRECTED-PRN
     Dates: start: 20220419
  6. FERROUS SULFATE [Concomitant]
     Active Substance: FERROUS SULFATE
     Dosage: EVERY MORNING
     Dates: start: 20220419
  7. FUROSEMIDE [Concomitant]
     Active Substance: FUROSEMIDE
     Dosage: EVERY MORNING
     Dates: start: 20220419
  8. LANSOPRAZOLE [Concomitant]
     Active Substance: LANSOPRAZOLE
     Indication: Barrett^s oesophagus
     Dosage: EVERY MORNING AND NIGHT
     Dates: start: 20220419
  9. LISINOPRIL [Concomitant]
     Active Substance: LISINOPRIL
     Indication: Essential hypertension
     Dosage: EVERY MORNING
     Dates: start: 20220419
  10. MORPHINE SULFATE [Concomitant]
     Active Substance: MORPHINE SULFATE
     Indication: Asthenia
     Dosage: 10MG/5ML ?5ML IF NEEDED FOR SIGNIFICANT PAIN PRN?100ML PRN
     Route: 048
     Dates: start: 20220419
  11. PEPPERMINT OIL [Concomitant]
     Active Substance: PEPPERMINT OIL
     Dosage: MORNING AND TEATIME
     Dates: start: 20220419
  12. ACETAMINOPHEN\CODEINE PHOSPHATE [Concomitant]
     Active Substance: ACETAMINOPHEN\CODEINE PHOSPHATE
     Dosage: 30MG/500MG
     Dates: start: 20220419
  13. DERMOL [Concomitant]
     Active Substance: BENZALKONIUM CHLORIDE\CHLORHEXIDINE HYDROCHLORIDE\ISOPROPYL MYRISTATE\PARAFFIN
     Dosage: WHEN REQUIRED
     Dates: start: 20220419
  14. CYCLIZINE [Concomitant]
     Active Substance: CYCLIZINE
     Indication: Nausea
     Dosage: AS NECESSARY
     Dates: start: 20220419
  15. ISPAGHULA EXTRACT\PSYLLIUM [Concomitant]
     Active Substance: HERBALS\PLANTAGO OVATA SEED\PLANTAGO SEED
     Dosage: SELDOM TAKES
     Dates: start: 20211012
  16. NITROFURANTOIN [Concomitant]
     Active Substance: NITROFURANTOIN
     Dates: start: 20220503

REACTIONS (1)
  - Electrocardiogram QT prolonged [Recovered/Resolved]
